FAERS Safety Report 9100072 (Version 1)
Quarter: 2013Q1

REPORT INFORMATION
  Report Type: Report from Study
  Country: DE (occurrence: DE)
  Receive Date: 20130215
  Receipt Date: 20130215
  Transmission Date: 20140127
  Serious: Yes (Other)
  Sender: FDA-Public Use
  Company Number: DE-TEVA-386810USA

PATIENT
  Age: 75 Year
  Sex: Female

DRUGS (7)
  1. BENDAMUSTINE [Suspect]
     Dates: start: 20120319
  2. L-THYROXIN [Concomitant]
     Dosage: 75  DAILY; 75 UG
  3. ACE-HEMMER [Concomitant]
     Dosage: 50 UNKNOWN DAILY;
  4. BISOPROLOL [Concomitant]
     Dosage: (1-0-1/2)
  5. HCT [Concomitant]
     Dosage: 25 UNKNOWN DAILY;
  6. ACICLOVIR [Concomitant]
     Dosage: 400 UNKNOWN DAILY;
  7. TAVEGIL [Concomitant]
     Route: 048

REACTIONS (1)
  - Liver function test abnormal [Not Recovered/Not Resolved]
